FAERS Safety Report 15979030 (Version 1)
Quarter: 2019Q1

REPORT INFORMATION
  Report Type: Spontaneous
  Country: CN (occurrence: CN)
  Receive Date: 20190219
  Receipt Date: 20190219
  Transmission Date: 20190418
  Serious: Yes (Other)
  Sender: FDA-Public Use
  Company Number: CN-BAXTER-2019BAX003375

PATIENT
  Age: 28 Year
  Sex: Male

DRUGS (4)
  1. 5% GLUCOSE  INJECTION [Suspect]
     Active Substance: DEXTROSE
     Indication: MEDICATION DILUTION
     Dosage: 5% GS 500ML + IFOSFAMIDE 3.5G
     Route: 041
     Dates: start: 20190123, end: 20190127
  2. 0.9% SODIUM CHLORIDE INJECTION [Suspect]
     Active Substance: SODIUM CHLORIDE
     Indication: MEDICATION DILUTION
     Dosage: 0.9% NS 250ML + ETOPOSIDE 50MG
     Route: 041
     Dates: start: 20190123, end: 20190127
  3. HOLOXAN [Suspect]
     Active Substance: IFOSFAMIDE
     Indication: BONE NEOPLASM
     Dosage: 5% GS 500ML + IFOSFAMIDE 3.5G
     Route: 041
     Dates: start: 20190123, end: 20190127
  4. ETOPOSIDE. [Suspect]
     Active Substance: ETOPOSIDE
     Indication: BONE NEOPLASM
     Route: 041
     Dates: start: 20190123, end: 20190127

REACTIONS (2)
  - Bone marrow failure [Unknown]
  - Neutropenia [Unknown]

NARRATIVE: CASE EVENT DATE: 20190128
